FAERS Safety Report 6577663-8 (Version None)
Quarter: 2010Q1

REPORT INFORMATION
  Report Type: 
  Country: None (occurrence: None)
  Receive Date: 20100211
  Receipt Date: 20100202
  Transmission Date: 20100710
  Serious: Yes (Other)
  Sender: FDA-Public Use
  Company Number: PHEH2010US01831

PATIENT
  Sex: Male

DRUGS (6)
  1. CLOZAPINE [Suspect]
     Indication: SCHIZOPHRENIA
     Dosage: 150 MG, BID
     Route: 048
  2. CLOZAPINE [Suspect]
     Dosage: 200MG AM AND 250MG PM
  3. TRILEPTAL [Concomitant]
     Indication: CONVULSION
     Dosage: 600MG AM/ 900MG PM
  4. GLUCOPHAGE [Concomitant]
  5. VASOTEC [Concomitant]
  6. ASPIRIN [Concomitant]
     Dosage: 81 MG, UNK

REACTIONS (4)
  - CONVULSION [None]
  - DYSARTHRIA [None]
  - TRANSIENT ISCHAEMIC ATTACK [None]
  - UNRESPONSIVE TO STIMULI [None]
